FAERS Safety Report 4634144-6 (Version None)
Quarter: 2005Q2

REPORT INFORMATION
  Report Type: 
  Country: None (occurrence: None)
  Receive Date: 20050325
  Receipt Date: 20050112
  Transmission Date: 20051028
  Serious: No
  Sender: FDA-Public Use
  Company Number: USA041285983

PATIENT
  Age: 73 Year
  Sex: Female

DRUGS (2)
  1. FORTEO [Suspect]
     Indication: OSTEOPOROSIS
     Dates: start: 20041208
  2. VITAMINS [Concomitant]

REACTIONS (12)
  - ABDOMINAL PAIN UPPER [None]
  - BACK PAIN [None]
  - BOWEL SOUNDS ABNORMAL [None]
  - CONSTIPATION [None]
  - DYSPEPSIA [None]
  - FEELING ABNORMAL [None]
  - GASTRIC DISORDER [None]
  - HEADACHE [None]
  - INSOMNIA [None]
  - PAIN [None]
  - PAIN IN EXTREMITY [None]
  - STRESS [None]
